FAERS Safety Report 16381689 (Version 5)
Quarter: 2020Q1

REPORT INFORMATION
  Report Type: Spontaneous
  Country: DZ (occurrence: DZ)
  Receive Date: 20190603
  Receipt Date: 20200121
  Transmission Date: 20200409
  Serious: Yes (Death, Hospitalization, Other)
  Sender: FDA-Public Use
  Company Number: DZ-BIOVITRUM-2019DZ1247

PATIENT
  Age: 7 Month
  Sex: Male
  Weight: 8 kg

DRUGS (4)
  1. ALDACTONE [Concomitant]
     Active Substance: SPIRONOLACTONE
     Indication: HAEMORRHAGIC DISORDER
     Route: 048
  2. ORFADIN [Suspect]
     Active Substance: NITISINONE
     Route: 048
     Dates: start: 2019
  3. LASILIX [Concomitant]
     Active Substance: FUROSEMIDE
     Indication: ASCITES
     Route: 042
  4. ORFADIN [Suspect]
     Active Substance: NITISINONE
     Indication: TYROSINAEMIA
     Route: 048

REACTIONS (5)
  - Hepatic encephalopathy [Fatal]
  - Eye disorder [Unknown]
  - Underdose [Recovered/Resolved]
  - Blindness [Unknown]
  - Status epilepticus [Unknown]

NARRATIVE: CASE EVENT DATE: 201902
